FAERS Safety Report 9240424 (Version 1)
Quarter: 2013Q1

REPORT INFORMATION
  Report Type: Spontaneous
  Country: US (occurrence: None)
  Receive Date: 20121107
  Receipt Date: 20121107
  Transmission Date: 20140127
  Serious: No
  Sender: FDA-Public Use
  Company Number: 2012HGS-003865

PATIENT
  Age: 42 Year
  Sex: Female

DRUGS (11)
  1. BENLYSTA [Suspect]
     Indication: SYSTEMIC LUPUS ERYTHEMATOSUS
     Dosage: 1 IN 28 D, INTRAVENOUS DRIP
     Route: 041
     Dates: start: 20120620
  2. METHOTREXATE (METHOTREXATE) (METHOTREXATE) [Concomitant]
  3. PLAQUENIL (HYDROXYCHLOROQUINE SULFATE) (HYDROXYCHLOROQUINE SULFATE) [Concomitant]
  4. PREDNISONE (PREDNISONE) (PREDNISONE) [Concomitant]
  5. LYRICA (PREGABALIN) (PREGABALIN) [Concomitant]
  6. COMBIVENT INHALER (COMBIVENT) (IPRATROPIUM BROMIDE, SALBUTAMOL SULFATE) [Concomitant]
  7. QVAR INHALER (BECLOMETASONE DIPROPIONATE) (BECLOMETASONE DIPROPIONATE) [Concomitant]
  8. ALEVE (NAPROXEN SODIUM) (NAPROXEN SODIUM) [Concomitant]
  9. OXYCODONE (OXYCODONE) (OXYCODONE) [Concomitant]
  10. TRAMADOL (TRAMADOL) (TRAMADOL) [Concomitant]
  11. AMBIEN (ZOLPIDEM TARTRATE) (ZOLPIDEM TARTRATE) [Concomitant]

REACTIONS (5)
  - Tremor [None]
  - Paraesthesia [None]
  - Skin burning sensation [None]
  - Pyrexia [None]
  - Speech disorder [None]
